FAERS Safety Report 15048704 (Version 1)
Quarter: 2018Q2

REPORT INFORMATION
  Report Type: Spontaneous
  Country: NL (occurrence: NL)
  Receive Date: 20180622
  Receipt Date: 20180622
  Transmission Date: 20180711
  Serious: Yes (Other)
  Sender: FDA-Public Use
  Company Number: NL-TEVA-2018-NL-911571

PATIENT
  Age: 59 Year
  Sex: Male

DRUGS (8)
  1. METOPROLOL. [Concomitant]
     Active Substance: METOPROLOL
     Dates: start: 20170629
  2. INDOMETACIN [Suspect]
     Active Substance: INDOMETHACIN
     Dosage: AS REQUIRED
     Dates: end: 20180201
  3. INFLIXIMAB (INFLECTRA) [Concomitant]
     Dosage: 5MG/KG, 1X/8W
  4. SIMVASTATINE [Concomitant]
     Active Substance: SIMVASTATIN
     Dosage: 40 MILLIGRAM DAILY;
  5. VITAMINE D [Concomitant]
     Dosage: ONBEKEND, ONBEKEND
     Route: 065
  6. VALSARTAN. [Concomitant]
     Active Substance: VALSARTAN
     Dosage: ONBEKEND, 2X/D
     Dates: start: 20170629
  7. PARACETAMOL [Concomitant]
     Active Substance: ACETAMINOPHEN
  8. OMEPRAZOL [Concomitant]
     Active Substance: OMEPRAZOLE
     Dosage: 40 MILLIGRAM DAILY;

REACTIONS (1)
  - Renal impairment [Recovered/Resolved]
